FAERS Safety Report 18992517 (Version 4)
Quarter: 2021Q3

REPORT INFORMATION
  Report Type: Spontaneous
  Country: US (occurrence: US)
  Receive Date: 20210310
  Receipt Date: 20210708
  Transmission Date: 20211014
  Serious: Yes (Hospitalization, Other)
  Sender: FDA-Public Use
  Company Number: US-PFIZER INC-2021236007

PATIENT
  Age: 62 Year
  Sex: Female

DRUGS (2)
  1. IBRANCE [Suspect]
     Active Substance: PALBOCICLIB
     Indication: CHEMOTHERAPY
     Dosage: 100 MG
  2. IBRANCE [Suspect]
     Active Substance: PALBOCICLIB
     Indication: METASTASIS
     Dosage: 125 MG

REACTIONS (5)
  - COVID-19 [Unknown]
  - Red blood cell count decreased [Unknown]
  - Blood count abnormal [Unknown]
  - Neoplasm progression [Unknown]
  - Cerebrovascular accident [Unknown]
